FAERS Safety Report 5661433-9 (Version None)
Quarter: 2008Q1

REPORT INFORMATION
  Report Type: 
  Country: None (occurrence: None)
  Receive Date: 20080311
  Receipt Date: 20080303
  Transmission Date: 20080703
  Serious: Yes (Life-Threatening)
  Sender: FDA-Public Use
  Company Number: GB-PFIZER INC-2008020901

PATIENT
  Age: 60 Year
  Sex: Female
  Weight: 80 kg

DRUGS (11)
  1. PREDNISOLONE [Suspect]
  2. METHOTREXATE [Suspect]
     Dosage: TEXT:7.5MG WEEKLY EVERY WEEK
  3. ETANERCEPT [Suspect]
  4. ASPIRIN [Concomitant]
  5. ATENOLOL [Concomitant]
  6. FUROSEMIDE [Concomitant]
  7. GLICLAZIDE [Concomitant]
  8. MELOXICAM [Concomitant]
  9. OMEPRAZOLE [Concomitant]
  10. ROSIGLITAZONE [Concomitant]
  11. ROSUVASTATIN [Concomitant]

REACTIONS (3)
  - HAEMODIALYSIS [None]
  - MULTI-ORGAN FAILURE [None]
  - SEPSIS [None]
